FAERS Safety Report 9708034 (Version 1)
Quarter: 2013Q4

REPORT INFORMATION
  Report Type: Spontaneous
  Country: US (occurrence: None)
  Receive Date: 20131122
  Receipt Date: 20131122
  Transmission Date: 20140711
  Serious: Yes (Other)
  Sender: FDA-Public Use
  Company Number: None

PATIENT
  Age: 59 Year
  Sex: Female
  Weight: 109.77 kg

DRUGS (3)
  1. LYRICA [Suspect]
     Indication: BACK PAIN
     Dosage: 2 PILLS THREE TIMES DAILY TAKEN BY MOUTH
     Route: 048
     Dates: start: 20100708, end: 20121220
  2. FISH OIL [Concomitant]
  3. ONE A DAY VITAMIN [Concomitant]

REACTIONS (2)
  - Dry eye [None]
  - Lacrimation decreased [None]
